FAERS Safety Report 20935323 (Version 1)
Quarter: 2022Q2

REPORT INFORMATION
  Report Type: Spontaneous
  Country: None (occurrence: US)
  Receive Date: 20220609
  Receipt Date: 20220609
  Transmission Date: 20220721
  Serious: Yes (Other)
  Sender: FDA-Public Use
  Company Number: US-Edgewell Personal Care, LLC-2129616

PATIENT
  Age: 6 Year
  Sex: Female

DRUGS (1)
  1. BANANA BOAT (AVOBENZONE\HOMOSALATE\OCTISALATE\OCTOCRYLENE\OXYBENZONE) [Suspect]
     Active Substance: AVOBENZONE\HOMOSALATE\OCTISALATE\OCTOCRYLENE\OXYBENZONE
     Indication: Prophylaxis against solar radiation
     Route: 061
     Dates: start: 20220525

REACTIONS (3)
  - Thermal burn [Recovered/Resolved]
  - Erythema [Recovered/Resolved]
  - Product caught fire [Recovered/Resolved]

NARRATIVE: CASE EVENT DATE: 20220525
